FAERS Safety Report 14971224 (Version 1)
Quarter: 2018Q2

REPORT INFORMATION
  Report Type: Spontaneous
  Country: CA (occurrence: CA)
  Receive Date: 20180604
  Receipt Date: 20180604
  Transmission Date: 20180711
  Serious: Yes (Life-Threatening, Other)
  Sender: FDA-Public Use
  Company Number: CA-FRESENIUS KABI-FK201806368

PATIENT
  Age: 55 Year
  Sex: Female
  Weight: 106 kg

DRUGS (1)
  1. VANCOMYCIN (MANUFACTURER UNKNOWN) [Suspect]
     Active Substance: VANCOMYCIN
     Indication: INFECTION
     Route: 042

REACTIONS (2)
  - Burning sensation [Recovered/Resolved]
  - Anaphylactic shock [Recovered/Resolved]
